FAERS Safety Report 20455118 (Version 1)
Quarter: 2022Q1

REPORT INFORMATION
  Report Type: Spontaneous
  Country: US (occurrence: None)
  Receive Date: 20220209
  Receipt Date: 20220209
  Transmission Date: 20220423
  Serious: Yes (Other)
  Sender: FDA-Public Use
  Company Number: None

PATIENT
  Age: 53 Year
  Sex: Female

DRUGS (1)
  1. ATORVASTATIN [Suspect]
     Active Substance: ATORVASTATIN
     Indication: Blood cholesterol increased

REACTIONS (13)
  - Hepatic steatosis [None]
  - Illness [None]
  - Muscular weakness [None]
  - Back disorder [None]
  - Joint range of motion decreased [None]
  - Arthralgia [None]
  - Nasal congestion [None]
  - Oropharyngeal pain [None]
  - Diarrhoea [None]
  - Pain in extremity [None]
  - Rheumatic disorder [None]
  - Dyspnoea [None]
  - Headache [None]

NARRATIVE: CASE EVENT DATE: 20211204
